FAERS Safety Report 6907108-7 (Version None)
Quarter: 2010Q3

REPORT INFORMATION
  Report Type: 
  Country: None (occurrence: None)
  Receive Date: 20100804
  Receipt Date: 20090726
  Transmission Date: 20110219
  Serious: Yes (Hospitalization)
  Sender: FDA-Public Use
  Company Number: US-PFIZER INC-2009246293

PATIENT
  Sex: Male

DRUGS (1)
  1. NARDIL [Suspect]
     Indication: DEPRESSION
     Route: 048
     Dates: start: 20090601

REACTIONS (1)
  - HEADACHE [None]
